FAERS Safety Report 11507177 (Version 1)
Quarter: 2015Q3

REPORT INFORMATION
  Report Type: Spontaneous
  Country: IN (occurrence: IN)
  Receive Date: 20150915
  Receipt Date: 20150915
  Transmission Date: 20151125
  Serious: Yes (Death, Other)
  Sender: FDA-Public Use
  Company Number: IN-CIPLA-2015IN07291

PATIENT

DRUGS (3)
  1. DOCETAXEL. [Suspect]
     Active Substance: DOCETAXEL
     Indication: NEOPLASM MALIGNANT
     Dosage: 100 MG/M2, DAY 8; Q3 WEEKLY
     Route: 065
     Dates: start: 20111229
  2. ZOLEDRONIC ACID [Suspect]
     Active Substance: ZOLEDRONIC ACID
     Indication: METASTASES TO BONE
     Dosage: UNK
     Route: 065
  3. GEMCITABINE [Suspect]
     Active Substance: GEMCITABINE\GEMCITABINE HYDROCHLORIDE
     Indication: NEOPLASM MALIGNANT
     Dosage: 900 MG/M2, DAYS 1 AND 8; Q3 WEEKLY
     Route: 065
     Dates: start: 20111229

REACTIONS (10)
  - Abdominal distension [Unknown]
  - Deep vein thrombosis [Unknown]
  - General physical health deterioration [Unknown]
  - Back pain [Unknown]
  - Depressed level of consciousness [Unknown]
  - Neutropenia [Unknown]
  - Oedema peripheral [Unknown]
  - Disease progression [Fatal]
  - Hypotension [Unknown]
  - Vomiting [Unknown]
